FAERS Safety Report 6618089-8 (Version None)
Quarter: 2010Q1

REPORT INFORMATION
  Report Type: 
  Country: None (occurrence: None)
  Receive Date: 20100308
  Receipt Date: 20100226
  Transmission Date: 20100710
  Serious: Yes (Other)
  Sender: FDA-Public Use
  Company Number: JP-PFIZER INC-2010025290

PATIENT
  Age: 64 Year
  Sex: Male

DRUGS (1)
  1. AMLODIPINE [Suspect]

REACTIONS (1)
  - CHROMATURIA [None]
